FAERS Safety Report 6743625-0 (Version None)
Quarter: 2010Q2

REPORT INFORMATION
  Report Type: 
  Country: None (occurrence: None)
  Receive Date: 20100527
  Receipt Date: 20100517
  Transmission Date: 20101027
  Serious: Yes (Other)
  Sender: FDA-Public Use
  Company Number: DE-ROCHE-705012

PATIENT
  Sex: Female
  Weight: 65 kg

DRUGS (1)
  1. HERCEPTIN [Suspect]
     Indication: BREAST CANCER
     Dosage: MONOTHERAPY WITH TRASTUZUMAB
     Route: 042
     Dates: start: 20091111

REACTIONS (2)
  - ASCITES [None]
  - LIVER FUNCTION TEST ABNORMAL [None]
